FAERS Safety Report 5083309-0 (Version None)
Quarter: 2006Q3

REPORT INFORMATION
  Report Type: 
  Country: None (occurrence: None)
  Receive Date: 20060818
  Receipt Date: 20060804
  Transmission Date: 20061208
  Serious: Yes (Hospitalization)
  Sender: FDA-Public Use
  Company Number: US-AMGEN-US189126

PATIENT
  Sex: Male

DRUGS (2)
  1. ENBREL [Suspect]
     Indication: RHEUMATOID ARTHRITIS
     Route: 058
     Dates: start: 19990301
  2. PLAQUENIL [Concomitant]
     Route: 048

REACTIONS (4)
  - FOOT OPERATION [None]
  - KNEE ARTHROPLASTY [None]
  - LIMB OPERATION [None]
  - SURGERY [None]
